FAERS Safety Report 8537651-9 (Version None)
Quarter: 2012Q3

REPORT INFORMATION
  Report Type: 
  Country: None (occurrence: None)
  Receive Date: 20120725
  Receipt Date: 20120719
  Transmission Date: 20120928
  Serious: Yes (Hospitalization)
  Sender: FDA-Public Use
  Company Number: PHEH2012US014224

PATIENT
  Sex: Female
  Weight: 64 kg

DRUGS (1)
  1. ILARIS [Suspect]
     Indication: MUCKLE-WELLS SYNDROME
     Dosage: 300 MG, Q8WEEKS
     Route: 058
     Dates: start: 20120216

REACTIONS (2)
  - PALPITATIONS [None]
  - TACHYCARDIA [None]
